FAERS Safety Report 12137048 (Version 1)
Quarter: 2016Q1

REPORT INFORMATION
  Report Type: Spontaneous
  Country: US (occurrence: US)
  Receive Date: 20160302
  Receipt Date: 20160302
  Transmission Date: 20160526
  Serious: No
  Sender: FDA-Public Use
  Company Number: US-PERRIGO-15US011011

PATIENT
  Sex: Male
  Weight: 67.12 kg

DRUGS (1)
  1. GOOD NEIGHBOR PHARMACY ANTI DIARRHEAL [Suspect]
     Active Substance: LOPERAMIDE HYDROCHLORIDE
     Indication: SUBSTANCE ABUSE
     Dosage: 50 TO 60 MG, QD
     Route: 048
     Dates: start: 2014, end: 20151017

REACTIONS (4)
  - Feeling abnormal [Unknown]
  - Substance abuse [Recovered/Resolved]
  - Overdose [Recovered/Resolved]
  - Incorrect drug administration duration [Recovered/Resolved]

NARRATIVE: CASE EVENT DATE: 2014
